FAERS Safety Report 4301829-0 (Version None)
Quarter: 2004Q1

REPORT INFORMATION
  Report Type: 
  Country: None (occurrence: None)
  Receive Date: 20040218
  Receipt Date: 20031205
  Transmission Date: 20041129
  Serious: Yes (Hospitalization)
  Sender: FDA-Public Use
  Company Number: K200301874

PATIENT
  Age: 80 Year
  Sex: Female
  Weight: 54 kg

DRUGS (8)
  1. PROCANBID [Suspect]
     Indication: HEART RATE IRREGULAR
     Dosage: 250 MG, BID, ORAL
     Route: 048
     Dates: start: 20030801, end: 20031105
  2. DIGOXIN [Concomitant]
  3. CENTRUM SILVER (ASCORBIC ACID, CALCIUM, MINERALS NOS,RETINOL,TOCOPHERY [Concomitant]
  4. PLAVIX [Concomitant]
  5. ... [Concomitant]
  6. ... [Concomitant]
  7. .... [Concomitant]
  8. PLAVIX [Concomitant]

REACTIONS (10)
  - ARTHRALGIA [None]
  - ARTHRITIS [None]
  - CARDIOACTIVE DRUG LEVEL INCREASED [None]
  - CHEST PAIN [None]
  - DYSPNOEA [None]
  - LUPUS-LIKE SYNDROME [None]
  - OEDEMA [None]
  - OEDEMA PERIPHERAL [None]
  - PLEURAL DISORDER [None]
  - PLEURAL EFFUSION [None]
